FAERS Safety Report 17455509 (Version 1)
Quarter: 2020Q1

REPORT INFORMATION
  Report Type: Spontaneous
  Country: SE (occurrence: SE)
  Receive Date: 20200225
  Receipt Date: 20200225
  Transmission Date: 20200409
  Serious: Yes (Hospitalization)
  Sender: FDA-Public Use
  Company Number: SE-AMGEN-SWESP2020028019

PATIENT
  Age: 78 Year
  Sex: Female

DRUGS (15)
  1. LERKANIDIPIN 2CARE4 [Concomitant]
     Dosage: 10 MILLIGRAM
  2. BEHEPAN [CYANOCOBALAMIN] [Concomitant]
     Active Substance: CYANOCOBALAMIN
     Dosage: 1 MILLIGRAM PER MILLILITRE, QMO
  3. EMGESAN [Concomitant]
     Active Substance: MAGNESIUM HYDROXIDE
     Dosage: 250 MILLIGRAM
  4. DETREMIN [Concomitant]
     Dosage: 10 000 E/ML, 10 DROPS 1 TIME PER WEEK
  5. CALCITUGG [Concomitant]
     Dosage: 500 MILLIGRAM
  6. SIMVASTATIN. [Concomitant]
     Active Substance: SIMVASTATIN
     Dosage: 10 MILLIGRAM
  7. OMEPRAZOL [OMEPRAZOLE] [Concomitant]
     Active Substance: OMEPRAZOLE
     Dosage: 20 MILLIGRAM
  8. RENVELA [Concomitant]
     Active Substance: SEVELAMER CARBONATE
     Dosage: 800 MILLIGRAM
  9. ALLOPURINOL. [Concomitant]
     Active Substance: ALLOPURINOL
     Dosage: 100 MILLIGRAM
  10. METOPROLOL. [Concomitant]
     Active Substance: METOPROLOL
     Dosage: 25 MILLIGRAM
  11. PROLIA [Suspect]
     Active Substance: DENOSUMAB
     Indication: OSTEOPOROSIS
     Dosage: 60 MILLIGRAM
     Route: 058
     Dates: start: 20200102, end: 20200102
  12. FOLACIN [FOLIC ACID] [Concomitant]
     Active Substance: FOLIC ACID
     Dosage: 1 MILLIGRAM
  13. EPREX [Concomitant]
     Active Substance: ERYTHROPOIETIN
     Dosage: 2000 E,
  14. ALFACALCIDOL [Concomitant]
     Active Substance: ALFACALCIDOL
     Dosage: 0.25 MILLIGRAM
  15. LEVAXIN [Concomitant]
     Active Substance: LEVOTHYROXINE SODIUM
     Dosage: 100 MG RESPECTIVELY 125 MICROGRAM, TOTAL WEEKLY DOSE 825 MICROGRAM

REACTIONS (2)
  - Hypocalcaemia [Not Recovered/Not Resolved]
  - Condition aggravated [Not Recovered/Not Resolved]

NARRATIVE: CASE EVENT DATE: 20200102
